FAERS Safety Report 25356987 (Version 1)
Quarter: 2025Q2

REPORT INFORMATION
  Report Type: Spontaneous
  Country: US (occurrence: US)
  Receive Date: 20250526
  Receipt Date: 20250526
  Transmission Date: 20250717
  Serious: No
  Sender: VANDA PHARMACEUTICALS
  Company Number: US-VANDA PHARMACEUTICALS, INC-2024ILOUS001983

PATIENT
  Age: 61 Year
  Sex: Female

DRUGS (1)
  1. FANAPT [Suspect]
     Active Substance: ILOPERIDONE
     Indication: Product used for unknown indication
     Dosage: 6 MILLIGRAM, BID, STARTED ON TITRATION PACK
     Route: 065
     Dates: start: 202410, end: 202410

REACTIONS (3)
  - Dizziness [Unknown]
  - Headache [Unknown]
  - Nausea [Unknown]
